FAERS Safety Report 25866110 (Version 3)
Quarter: 2025Q4

REPORT INFORMATION
  Report Type: Report from Study
  Country: GB (occurrence: GB)
  Receive Date: 20250930
  Receipt Date: 20251202
  Transmission Date: 20260118
  Serious: Yes (Hospitalization)
  Sender: AMGEN
  Company Number: GB-002147023-NVSC2021GB174864

PATIENT
  Age: 83 Year
  Sex: Female

DRUGS (3)
  1. AIMOVIG [Suspect]
     Active Substance: ERENUMAB-AOOE
     Indication: Migraine
     Dosage: UNK
     Route: 065
     Dates: start: 20190724
  2. AIMOVIG [Suspect]
     Active Substance: ERENUMAB-AOOE
     Dosage: AIMOVIG (ERENUMAB) 140MG PEN PK1
     Route: 065
     Dates: start: 201907
  3. AIMOVIG [Suspect]
     Active Substance: ERENUMAB-AOOE
     Dosage: 140 MG
     Route: 058
     Dates: start: 202008

REACTIONS (6)
  - Cerebrovascular accident [Unknown]
  - Tremor [Unknown]
  - Migraine [Unknown]
  - Product storage error [Unknown]
  - Memory impairment [Unknown]
  - Malaise [Unknown]
